FAERS Safety Report 13028661 (Version 12)
Quarter: 2019Q1

REPORT INFORMATION
  Report Type: Spontaneous
  Country: US (occurrence: US)
  Receive Date: 20161214
  Receipt Date: 20190314
  Transmission Date: 20190417
  Serious: Yes (Hospitalization, Other)
  Sender: FDA-Public Use
  Company Number: US-INCYTE CORPORATION-2016IN007901

PATIENT

DRUGS (21)
  1. JAKAFI [Interacting]
     Active Substance: RUXOLITINIB
     Indication: POLYCYTHAEMIA VERA
     Dosage: UNK
     Route: 048
  2. WELLBUTRIN [Concomitant]
     Active Substance: BUPROPION HYDROCHLORIDE
     Indication: PRODUCT USED FOR UNKNOWN INDICATION
     Dosage: 300 MG, QD
     Route: 065
  3. VIBERZI [Concomitant]
     Active Substance: ELUXADOLINE
     Indication: PRODUCT USED FOR UNKNOWN INDICATION
     Dosage: UNK
     Route: 065
  4. VITAMIN B [Concomitant]
     Active Substance: VITAMIN B
     Indication: PRODUCT USED FOR UNKNOWN INDICATION
     Dosage: UNK
     Route: 065
  5. JAKAFI [Interacting]
     Active Substance: RUXOLITINIB
     Dosage: 20 MG, BID
     Route: 048
  6. VITAMIN C [Concomitant]
     Active Substance: ASCORBIC ACID
     Indication: PRODUCT USED FOR UNKNOWN INDICATION
     Dosage: UNK
     Route: 065
  7. JAKAFI [Suspect]
     Active Substance: RUXOLITINIB
     Indication: MYELOFIBROSIS
     Dosage: 15 MG, BID
     Route: 048
     Dates: start: 2015
  8. JAKAFI [Interacting]
     Active Substance: RUXOLITINIB
     Dosage: 20 MG, BID
     Route: 048
  9. JAKAFI [Interacting]
     Active Substance: RUXOLITINIB
     Dosage: 10 MG, UNK
     Route: 048
  10. FUROSEMIDE. [Concomitant]
     Active Substance: FUROSEMIDE
     Indication: PRODUCT USED FOR UNKNOWN INDICATION
     Dosage: UNK
     Route: 065
  11. WARFARIN [Concomitant]
     Active Substance: WARFARIN
     Indication: PRODUCT USED FOR UNKNOWN INDICATION
     Dosage: 5 MG DAILY THEN 7.5 MG DAILY ON SAT AND SUNDAY
     Route: 065
  12. DOXYCYCLINE. [Concomitant]
     Active Substance: DOXYCYCLINE
     Indication: PRODUCT USED FOR UNKNOWN INDICATION
     Dosage: UNK
     Route: 065
  13. FAMOTIDINE. [Concomitant]
     Active Substance: FAMOTIDINE
     Indication: PRODUCT USED FOR UNKNOWN INDICATION
     Route: 065
  14. XIFAXAN [Concomitant]
     Active Substance: RIFAXIMIN
     Indication: PRODUCT USED FOR UNKNOWN INDICATION
     Dosage: 550 MG, BID
     Route: 065
  15. PROZAC [Concomitant]
     Active Substance: FLUOXETINE HYDROCHLORIDE
     Indication: PRODUCT USED FOR UNKNOWN INDICATION
     Dosage: 40 MG, QD
     Route: 065
  16. SPIRONOLACTONE. [Concomitant]
     Active Substance: SPIRONOLACTONE
     Indication: PRODUCT USED FOR UNKNOWN INDICATION
     Dosage: UNK
     Route: 065
  17. JAKAFI [Interacting]
     Active Substance: RUXOLITINIB
     Dosage: 20 MG, BID
     Route: 048
  18. JAKAFI [Interacting]
     Active Substance: RUXOLITINIB
     Dosage: 20 MG, BID
     Route: 048
  19. JAKAFI [Interacting]
     Active Substance: RUXOLITINIB
     Dosage: 15 MG, UNK
     Route: 048
  20. AMLODIPINE [Concomitant]
     Active Substance: AMLODIPINE BESYLATE
     Indication: PRODUCT USED FOR UNKNOWN INDICATION
     Dosage: 5 MG, BID
     Route: 065
  21. ASPIRIN                            /00002701/ [Concomitant]
     Active Substance: ASPIRIN
     Indication: PRODUCT USED FOR UNKNOWN INDICATION
     Dosage: 81 MG, QD
     Route: 065

REACTIONS (35)
  - Ascites [Not Recovered/Not Resolved]
  - Erectile dysfunction [Unknown]
  - Fall [Unknown]
  - Skin laceration [Unknown]
  - Haematuria [Not Recovered/Not Resolved]
  - Gastroenteritis viral [Recovered/Resolved]
  - Product dose omission [Unknown]
  - Arthropathy [Recovered/Resolved]
  - Shunt occlusion [Recovered/Resolved]
  - Granuloma annulare [Not Recovered/Not Resolved]
  - Dizziness [Unknown]
  - Sepsis [Unknown]
  - Liver disorder [Not Recovered/Not Resolved]
  - Feeding disorder [Recovered/Resolved]
  - Balance disorder [Unknown]
  - Drug ineffective [Unknown]
  - Weight decreased [Unknown]
  - Malaise [Unknown]
  - Gait disturbance [Recovered/Resolved]
  - Abdominal distension [Unknown]
  - Memory impairment [Unknown]
  - Apathy [Unknown]
  - Somnolence [Unknown]
  - Rash [Recovered/Resolved]
  - Wound haemorrhage [Recovering/Resolving]
  - Pyrexia [Unknown]
  - Irritable bowel syndrome [Unknown]
  - Bleeding time prolonged [Unknown]
  - Skin cancer [Unknown]
  - Thrombosis [Unknown]
  - Acne [Unknown]
  - Inhibitory drug interaction [Unknown]
  - Pharyngeal erythema [Recovered/Resolved]
  - Osteoarthritis [Unknown]
  - Contusion [Unknown]

NARRATIVE: CASE EVENT DATE: 2016
